FAERS Safety Report 10299988 (Version 1)
Quarter: 2014Q3

REPORT INFORMATION
  Report Type: Report from Study
  Country: IL (occurrence: IL)
  Receive Date: 20140711
  Receipt Date: 20140711
  Transmission Date: 20150326
  Serious: Yes (Hospitalization)
  Sender: FDA-Public Use
  Company Number: IL-ABBVIE-14P-082-1256152-00

PATIENT
  Age: 25 Year
  Sex: Male

DRUGS (1)
  1. HUMIRA [Suspect]
     Active Substance: ADALIMUMAB
     Indication: CROHN^S DISEASE
     Route: 058
     Dates: start: 20110221

REACTIONS (7)
  - Injury [Not Recovered/Not Resolved]
  - Wound [Unknown]
  - Pain in extremity [Not Recovered/Not Resolved]
  - Joint injury [Unknown]
  - Road traffic accident [Recovering/Resolving]
  - Joint injury [Not Recovered/Not Resolved]
  - Limb injury [Unknown]

NARRATIVE: CASE EVENT DATE: 20140626
